FAERS Safety Report 25177841 (Version 1)
Quarter: 2025Q2

REPORT INFORMATION
  Report Type: Spontaneous
  Country: US (occurrence: US)
  Receive Date: 20250409
  Receipt Date: 20250409
  Transmission Date: 20250717
  Serious: No
  Sender: ELI LILLY AND CO
  Company Number: US-ELI_LILLY_AND_COMPANY-US202504006474

PATIENT
  Age: 45 Year
  Sex: Female

DRUGS (4)
  1. MOUNJARO [Suspect]
     Active Substance: TIRZEPATIDE
     Indication: Glucose tolerance impaired
     Route: 058
  2. MOUNJARO [Suspect]
     Active Substance: TIRZEPATIDE
     Indication: Weight control
  3. TIRZEPATIDE [Suspect]
     Active Substance: TIRZEPATIDE
     Indication: Glucose tolerance impaired
     Route: 058
  4. TIRZEPATIDE [Suspect]
     Active Substance: TIRZEPATIDE
     Indication: Weight control

REACTIONS (3)
  - Off label use [Unknown]
  - Product tampering [Unknown]
  - Hunger [Unknown]
